FAERS Safety Report 4811763-5 (Version None)
Quarter: 2005Q4

REPORT INFORMATION
  Report Type: 
  Country: None (occurrence: None)
  Receive Date: 20051028
  Receipt Date: 20051026
  Transmission Date: 20060501
  Serious: Yes (Death)
  Sender: FDA-Public Use
  Company Number: JP-BOEHRINGER INGELHEIM PHARMACEUTICALS, INC.-2005-BP-18847NB

PATIENT
  Sex: Female

DRUGS (7)
  1. SPIRIVA [Suspect]
     Indication: BRONCHITIS CHRONIC
     Route: 055
     Dates: start: 20050819, end: 20050819
  2. RISPERIDONE [Suspect]
     Indication: CHARLES BONNET SYNDROME
     Route: 048
     Dates: start: 20050215, end: 20050820
  3. PREDNISOLONE [Suspect]
     Indication: RHEUMATOID ARTHRITIS
     Route: 048
     Dates: start: 19970101, end: 20050820
  4. SENNOSIDE [Concomitant]
     Route: 048
  5. QUETIAPINE FUMARATE [Concomitant]
     Indication: CHARLES BONNET SYNDROME
     Route: 048
     Dates: start: 20041101
  6. BROMHEXINE HYDROCHLORIDE [Concomitant]
     Route: 048
     Dates: start: 20050801
  7. TULOBUTEROL [Concomitant]
     Route: 062
     Dates: start: 20050801

REACTIONS (1)
  - SUDDEN DEATH [None]
